FAERS Safety Report 14262651 (Version 2)
Quarter: 2018Q1

REPORT INFORMATION
  Report Type: Report from Study
  Country: US (occurrence: BR)
  Receive Date: 20171208
  Receipt Date: 20180102
  Transmission Date: 20180508
  Serious: Yes (Hospitalization, Other)
  Sender: FDA-Public Use
  Company Number: US-SUNOVION-2017SUN005240

PATIENT
  Age: 87 Year
  Sex: Male
  Weight: 84 kg

DRUGS (4)
  1. DIPYRONE [Concomitant]
     Active Substance: DIPYRONE
  2. INDACATEROL AND GLYCOPYRROLATE [Suspect]
     Active Substance: GLYCOPYRROLATE\INDACATEROL MALEATE
     Indication: CHRONIC OBSTRUCTIVE PULMONARY DISEASE
     Dosage: 1 DF (110/50 UG), UNK REGIMEN #1
     Route: 065
  3. SERETIDE [Concomitant]
     Active Substance: FLUTICASONE PROPIONATE\SALMETEROL XINAFOATE
  4. INDACATEROL [Suspect]
     Active Substance: INDACATEROL
     Indication: PRODUCT USED FOR UNKNOWN INDICATION
     Dosage: UNK, REGIMEN #1
     Route: 065

REACTIONS (11)
  - Muscular weakness [Unknown]
  - Hypersensitivity [Unknown]
  - Myalgia [Unknown]
  - Bronchospasm [Unknown]
  - Colon cancer [Unknown]
  - Postoperative wound complication [Recovering/Resolving]
  - Cough [Unknown]
  - Respiratory failure [Recovering/Resolving]
  - Adenocarcinoma of colon [Unknown]
  - Wheezing [Unknown]
  - Rash [Unknown]

NARRATIVE: CASE EVENT DATE: 201707
